FAERS Safety Report 22099277 (Version 1)
Quarter: 2023Q1

REPORT INFORMATION
  Report Type: Spontaneous
  Country: US (occurrence: None)
  Receive Date: 20230315
  Receipt Date: 20230315
  Transmission Date: 20230417
  Serious: No
  Sender: FDA-Public Use
  Company Number: None

PATIENT
  Age: 52 Year
  Sex: Female
  Weight: 90 kg

DRUGS (5)
  1. PAXLOVID [Suspect]
     Active Substance: NIRMATRELVIR\RITONAVIR
     Indication: SARS-CoV-2 test positive
     Dosage: OTHER QUANTITY : 3 TABLET(S);?FREQUENCY : TWICE A DAY;?
     Route: 048
     Dates: start: 20230309, end: 20230312
  2. hydroclorithiazide [Concomitant]
  3. ATENOLOL [Concomitant]
     Active Substance: ATENOLOL
  4. ALBUTEROL [Concomitant]
     Active Substance: ALBUTEROL
  5. AZMACORT [Concomitant]
     Active Substance: TRIAMCINOLONE ACETONIDE

REACTIONS (9)
  - Dizziness [None]
  - Nausea [None]
  - Diarrhoea [None]
  - Blood pressure increased [None]
  - Abdominal pain upper [None]
  - Head discomfort [None]
  - Musculoskeletal discomfort [None]
  - Anxiety [None]
  - Flushing [None]

NARRATIVE: CASE EVENT DATE: 20230312
